FAERS Safety Report 13634819 (Version 1)
Quarter: 2017Q2

REPORT INFORMATION
  Report Type: Spontaneous
  Country: IT (occurrence: IT)
  Receive Date: 20170609
  Receipt Date: 20170609
  Transmission Date: 20170830
  Serious: Yes (Other)
  Sender: FDA-Public Use
  Company Number: IT-ROCHE-1883488

PATIENT
  Age: 52 Year
  Sex: Male

DRUGS (8)
  1. PANTOPRAZOLE [Concomitant]
     Active Substance: PANTOPRAZOLE
  2. SALAZOPYRIN EN-TABS [Concomitant]
     Active Substance: SULFASALAZINE
  3. FOLINA (ITALY) [Concomitant]
  4. ROACTEMRA [Suspect]
     Active Substance: TOCILIZUMAB
     Indication: RHEUMATOID ARTHRITIS
     Route: 042
     Dates: start: 20150109
  5. IRBESARTAN. [Concomitant]
     Active Substance: IRBESARTAN
  6. TELMISARTAN. [Concomitant]
     Active Substance: TELMISARTAN
  7. DIBASE [Concomitant]
     Active Substance: CHOLECALCIFEROL
  8. VASEXTEN [Concomitant]
     Active Substance: BARNIDIPINE HYDROCHLORIDE

REACTIONS (3)
  - Haematuria [Unknown]
  - Proteinuria [Unknown]
  - Glomerulonephritis [Not Recovered/Not Resolved]

NARRATIVE: CASE EVENT DATE: 20161202
